FAERS Safety Report 23050561 (Version 4)
Quarter: 2023Q4

REPORT INFORMATION
  Report Type: Report from Study
  Country: US (occurrence: US)
  Receive Date: 20231010
  Receipt Date: 20231106
  Transmission Date: 20240109
  Serious: Yes (Hospitalization, Other)
  Sender: FDA-Public Use
  Company Number: US-ABBVIE-5437057

PATIENT
  Age: 64 Year
  Sex: Female
  Weight: 74.843 kg

DRUGS (11)
  1. PLACEBO [Suspect]
     Active Substance: UNSPECIFIED INGREDIENT
     Indication: Psoriatic arthropathy
     Dosage: WEEK 0,4,16
     Route: 058
     Dates: start: 20191211, end: 20200401
  2. NORCO [Concomitant]
     Active Substance: ACETAMINOPHEN\HYDROCODONE BITARTRATE
     Indication: Psoriatic arthropathy
     Dosage: TIME INTERVAL: 0.33333333 DAYS: 10/325 MG
     Route: 048
     Dates: start: 20191028
  3. FLEXERIL [Concomitant]
     Active Substance: CYCLOBENZAPRINE HYDROCHLORIDE
     Indication: Intervertebral disc degeneration
     Route: 048
     Dates: start: 2009
  4. NAPROSYN [Concomitant]
     Active Substance: NAPROXEN
     Indication: Psoriatic arthropathy
     Route: 048
     Dates: start: 2009
  5. PRILOSEC [Concomitant]
     Active Substance: OMEPRAZOLE MAGNESIUM
     Indication: Gastrooesophageal reflux disease
     Route: 048
     Dates: start: 2009
  6. VITAMIN D [Concomitant]
     Active Substance: VITAMIN D NOS
     Indication: Vitamin D deficiency
     Route: 048
     Dates: start: 20191029
  7. ZOLOFT [Concomitant]
     Active Substance: SERTRALINE HYDROCHLORIDE
     Indication: Anxiety
     Route: 048
     Dates: start: 2014
  8. GRALIESE [Concomitant]
     Indication: Restless legs syndrome
     Route: 048
     Dates: start: 2018
  9. SYNTHROID [Concomitant]
     Active Substance: LEVOTHYROXINE SODIUM
     Indication: Hypothyroidism
     Route: 048
     Dates: start: 20191024
  10. RISANKIZUMAB [Suspect]
     Active Substance: RISANKIZUMAB
     Indication: Psoriatic arthropathy
     Dosage: TIME INTERVAL: TOTAL: WEEK 24
     Route: 058
     Dates: start: 20200527, end: 20200527
  11. RISANKIZUMAB [Suspect]
     Active Substance: RISANKIZUMAB
     Indication: Psoriatic arthropathy
     Route: 058
     Dates: start: 20200624, end: 20230621

REACTIONS (1)
  - Staphylococcal skin infection [Recovered/Resolved]

NARRATIVE: CASE EVENT DATE: 20230711
